FAERS Safety Report 6573889-8 (Version None)
Quarter: 2010Q1

REPORT INFORMATION
  Report Type: 
  Country: None (occurrence: None)
  Receive Date: 20100208
  Receipt Date: 20100125
  Transmission Date: 20100710
  Serious: Yes (Hospitalization)
  Sender: FDA-Public Use
  Company Number: DE-MYLANLABS-2009S1019566

PATIENT
  Age: 31 Year
  Sex: Female
  Weight: 56 kg

DRUGS (4)
  1. RISPERIDONE [Suspect]
     Indication: SEDATION
     Route: 048
  2. RISPERIDON STADA [Suspect]
     Indication: SEDATION
     Route: 048
  3. TIMONIL [Concomitant]
     Indication: CONVULSION
     Route: 048
  4. FERRUM HAUSMANN /00008101/ [Concomitant]
     Indication: IRON DEFICIENCY
     Route: 048

REACTIONS (4)
  - APATHY [None]
  - DECREASED APPETITE [None]
  - VITAMIN B COMPLEX DEFICIENCY [None]
  - WEIGHT DECREASED [None]
